FAERS Safety Report 6851021-0 (Version None)
Quarter: 2010Q3

REPORT INFORMATION
  Report Type: 
  Country: None (occurrence: None)
  Receive Date: 20100716
  Receipt Date: 20071024
  Transmission Date: 20110219
  Serious: No
  Sender: FDA-Public Use
  Company Number: US-PFIZER INC-2007091140

PATIENT
  Sex: Female
  Weight: 62.6 kg

DRUGS (2)
  1. CHANTIX [Suspect]
     Indication: SMOKING CESSATION THERAPY
     Dates: start: 20071015
  2. LUNESTA [Concomitant]
     Indication: INSOMNIA

REACTIONS (2)
  - ABDOMINAL PAIN [None]
  - PERSONALITY CHANGE [None]
